FAERS Safety Report 7124485-5 (Version None)
Quarter: 2010Q4

REPORT INFORMATION
  Report Type: 
  Country: None (occurrence: None)
  Receive Date: 20101128
  Receipt Date: 20101111
  Transmission Date: 20110411
  Serious: Yes (Other)
  Sender: FDA-Public Use
  Company Number: US-AMGEN-USASP2010004925

PATIENT

DRUGS (2)
  1. ENBREL [Suspect]
     Indication: PSORIASIS
     Dates: start: 20101026
  2. ENBREL [Suspect]
     Indication: PSORIATIC ARTHROPATHY

REACTIONS (6)
  - BACK PAIN [None]
  - HYPOAESTHESIA [None]
  - INJECTION SITE ERYTHEMA [None]
  - INJECTION SITE PRURITUS [None]
  - INJECTION SITE SWELLING [None]
  - PARAESTHESIA [None]
